FAERS Safety Report 23084390 (Version 1)
Quarter: 2023Q4

REPORT INFORMATION
  Report Type: Spontaneous
  Country: CH (occurrence: CH)
  Receive Date: 20231019
  Receipt Date: 20231019
  Transmission Date: 20240110
  Serious: Yes (Hospitalization, Other)
  Sender: FDA-Public Use
  Company Number: None

PATIENT
  Age: 70 Year
  Sex: Male
  Weight: 58 kg

DRUGS (17)
  1. ALDACTONE [Suspect]
     Active Substance: SPIRONOLACTONE
     Indication: Cardiac failure
     Dosage: 25 MG, 3X/DAY 2-1-0 (0START DATE MAY BE EARLIER, AVAILABLE DOCUMENTATION STARTS IN 2023/03)
     Route: 048
     Dates: start: 202303, end: 20230907
  2. CARBIMAZOLE [Suspect]
     Active Substance: CARBIMAZOLE
     Indication: Hyperthyroidism
     Dosage: 10 MG, 3X/DAY 2-2-2 (EVERY 8 HOURS)
     Route: 048
     Dates: start: 20230412, end: 20230907
  3. CARBIMAZOLE [Suspect]
     Active Substance: CARBIMAZOLE
     Dosage: 5 MG, 2X/DAY 1-0-1
     Route: 048
     Dates: start: 20230410, end: 20230411
  4. TORSEMIDE [Suspect]
     Active Substance: TORSEMIDE
     Indication: Cardiac failure
     Dosage: 10MG, 4X/DAY 2-2-0 START DATE MAY BE EARLIER, AVAILABLE DOCUMENTATION STARTS IN 2023/03)
     Route: 048
     Dates: start: 202303, end: 20230907
  5. CORDARONE [Concomitant]
     Active Substance: AMIODARONE HYDROCHLORIDE
     Dosage: 200 MG, 1X/DAY 1-0-0
     Route: 048
     Dates: start: 202301
  6. CORDARONE [Concomitant]
     Active Substance: AMIODARONE HYDROCHLORIDE
     Dosage: UNK
     Route: 048
     Dates: start: 201811, end: 2019
  7. ELIQUIS [Concomitant]
     Active Substance: APIXABAN
     Dosage: 5 MG, 2X/DAY 1-0-1
     Route: 048
     Dates: start: 202301
  8. PLAVIX [Concomitant]
     Active Substance: CLOPIDOGREL BISULFATE
     Dosage: 75 MG, 1X/DAY 1-0-0 (START DATE MAY BE EARLIER, AVAILABLE DOCUMENTATION STARTS IN 2023/03)
     Route: 048
     Dates: start: 202303
  9. BISOPROLOL [Concomitant]
     Active Substance: BISOPROLOL\BISOPROLOL FUMARATE
     Dosage: 2.5MG 1-0-0.5
     Route: 048
  10. DAPAGLIFLOZIN [Concomitant]
     Active Substance: DAPAGLIFLOZIN
     Dosage: 10 MG, 1X/DAY 1-0-0 (START DATE MAY BE EARLIER, AVAILABLE DOCUMENTATION STARTS IN 2023/03)
     Route: 048
     Dates: start: 202303
  11. CRESTOR [Concomitant]
     Active Substance: ROSUVASTATIN CALCIUM
     Dosage: 5 MG, 1X/DAY 1-0-0 (START DATE MAY BE EARLIER, AVAILABLE DOCUMENTATION STARTS IN 2023/03)
     Route: 048
     Dates: start: 202303
  12. KCL [Concomitant]
     Active Substance: POTASSIUM CHLORIDE
     Dosage: 30 MMOL, 3XDAY (10MMOL 3-3-3 (EVERY 8 HOURS))
     Route: 048
     Dates: start: 202303
  13. MAGNESIUM ASPARTATE HYDROCHLORIDE [Concomitant]
     Active Substance: MAGNESIUM ASPARTATE HYDROCHLORIDE
     Dosage: 10 MMOL, 1X/DAY 1-0-0 (START DATE MAY BE EARLIER, AVAILABLE DOCUMENTATION STARTS IN 2023/03)
     Route: 048
     Dates: start: 202303
  14. PANTOZOL [Concomitant]
     Active Substance: PANTOPRAZOLE SODIUM
     Dosage: 40 MG, 1X/DAY 1-0-0 (START DATE MAY BE EARLIER, AVAILABLE DOCUMENTATION STARTS IN 2023/03)
     Route: 048
     Dates: start: 202303
  15. CHOLECALCIFEROL [Concomitant]
     Active Substance: CHOLECALCIFEROL
     Dosage: 0.4ML 1X/DAY (0.4-0-0) START DATE MAY BE EARLIER, AVAILABLE DOCUMENTATION STARTS IN 2023/03
     Route: 048
     Dates: start: 202303
  16. CETIRIZINE HYDROCHLORIDE [Concomitant]
     Active Substance: CETIRIZINE HYDROCHLORIDE
     Dosage: 10 MG, 1X/DAY 1-0-0 (START DATE MAY BE EARLIER, AVAILABLE DOCUMENTATION STARTS IN 2023/03)
     Route: 048
     Dates: start: 202303
  17. SUPRADYN PRO ENERGY COMPLEX [Concomitant]
     Dosage: 1 DF, 1X/DAY 1-0-0 (START DATE MAY BE EARLIER, AVAILABLE DOCUMENTATION STARTS IN 2023/03)
     Route: 048
     Dates: start: 202303

REACTIONS (2)
  - Hypothyroidism [Unknown]
  - Hyponatraemia [Recovered/Resolved]

NARRATIVE: CASE EVENT DATE: 20230907
